FAERS Safety Report 5325602-X (Version None)
Quarter: 2007Q2

REPORT INFORMATION
  Report Type: 
  Country: None (occurrence: None)
  Receive Date: 20070515
  Receipt Date: 20070503
  Transmission Date: 20071010
  Serious: Yes (Death, Hospitalization, Other)
  Sender: FDA-Public Use
  Company Number: US-PFIZER INC-2006116505

PATIENT
  Sex: Male
  Weight: 92.5 kg

DRUGS (1)
  1. BEXTRA [Suspect]
     Indication: ARTHRITIS
     Dates: start: 20041001, end: 20050117

REACTIONS (2)
  - DEATH [None]
  - MYOCARDIAL INFARCTION [None]
